FAERS Safety Report 21204585 (Version 1)
Quarter: 2022Q3

REPORT INFORMATION
  Report Type: Spontaneous
  Country: US (occurrence: US)
  Receive Date: 20220812
  Receipt Date: 20220812
  Transmission Date: 20221026
  Serious: No
  Sender: FDA-Public Use
  Company Number: US-BRISTOL-MYERS SQUIBB COMPANY-2022-088479

PATIENT
  Age: 66 Year
  Sex: Female

DRUGS (1)
  1. REVLIMID [Suspect]
     Active Substance: LENALIDOMIDE
     Indication: Diffuse large B-cell lymphoma
     Dosage: TAKE 1 CAPSULE BY MOUTH DAILY FOR 7 DAYS AND 7 DAYS OFF AND REPEAT IN A 28 DAY CYCLE
     Route: 048
     Dates: start: 20220613

REACTIONS (2)
  - Urinary tract infection [Not Recovered/Not Resolved]
  - Intentional product use issue [Unknown]
